FAERS Safety Report 5296453-X (Version None)
Quarter: 2007Q2

REPORT INFORMATION
  Report Type: 
  Country: None (occurrence: None)
  Receive Date: 20070413
  Receipt Date: 20070312
  Transmission Date: 20071010
  Serious: Yes (Other)
  Sender: FDA-Public Use
  Company Number: US-SANOFI-SYNTHELABO-A03200702517

PATIENT
  Sex: Male

DRUGS (3)
  1. LEXAPRO [Concomitant]
     Indication: DEPRESSION
     Dosage: UNK
     Route: 065
  2. WELLBUTRIN [Concomitant]
     Indication: DEPRESSION
     Dosage: UNK
     Route: 065
  3. AMBIEN [Suspect]
     Indication: INSOMNIA
     Route: 048
     Dates: start: 20060401, end: 20060720

REACTIONS (5)
  - AMNESIA [None]
  - DISORIENTATION [None]
  - INCREASED APPETITE [None]
  - SLEEP WALKING [None]
  - SOMNOLENCE [None]
